FAERS Safety Report 4878634-X (Version None)
Quarter: 2006Q1

REPORT INFORMATION
  Report Type: 
  Country: None (occurrence: None)
  Receive Date: 20060110
  Receipt Date: 20060110
  Transmission Date: 20060701
  Serious: Yes (Death, Hospitalization)
  Sender: FDA-Public Use
  Company Number: None

PATIENT
  Sex: Female
  Weight: 90 kg

DRUGS (3)
  1. CYCLOPHOSPHAMIDE [Suspect]
     Indication: BREAST CANCER
     Dosage: SEE IMAGE
     Dates: start: 20051111
  2. DOXORUBICIN HCL [Suspect]
     Dosage: SEE IMAGE
     Dates: start: 20051111
  3. NEULASTA [Suspect]
     Dosage: SEE IMAGE
     Dates: start: 20051112

REACTIONS (3)
  - COAGULOPATHY [None]
  - CONDITION AGGRAVATED [None]
  - HEPATITIS B [None]
